FAERS Safety Report 11573655 (Version 1)
Quarter: 2015Q3

REPORT INFORMATION
  Report Type: Spontaneous
  Country: BR (occurrence: BR)
  Receive Date: 20150929
  Receipt Date: 20150929
  Transmission Date: 20151125
  Serious: Yes (Other)
  Sender: FDA-Public Use
  Company Number: BR-VALIDUS PHARMACEUTICALS LLC-BR-2015VAL000594

PATIENT

DRUGS (4)
  1. DOSTINEX [Suspect]
     Active Substance: CABERGOLINE
     Indication: BLOOD PROLACTIN INCREASED
     Dosage: UNK
  2. PARLODEL [Suspect]
     Active Substance: BROMOCRIPTINE MESYLATE
     Indication: BLOOD PROLACTIN INCREASED
     Dosage: UNK, BID
     Route: 048
  3. PARLODEL [Suspect]
     Active Substance: BROMOCRIPTINE MESYLATE
     Dosage: UNK, BID
     Route: 048
     Dates: start: 2013
  4. TARGIFOR [Concomitant]
     Dosage: UNK

REACTIONS (11)
  - Fall [Recovered/Resolved]
  - Hypothalamo-pituitary disorder [Recovering/Resolving]
  - Mass [Recovering/Resolving]
  - Diarrhoea [Recovered/Resolved]
  - Renal disorder [Recovering/Resolving]
  - Haematocrit decreased [Recovering/Resolving]
  - Nephrolithiasis [Recovered/Resolved]
  - Breast swelling [Unknown]
  - Confusional state [Unknown]
  - Blood prolactin increased [Recovering/Resolving]
  - Fatigue [Recovering/Resolving]

NARRATIVE: CASE EVENT DATE: 2009
